FAERS Safety Report 7789866-5 (Version None)
Quarter: 2011Q3

REPORT INFORMATION
  Report Type: 
  Country: None (occurrence: None)
  Receive Date: 20110930
  Receipt Date: 20110415
  Transmission Date: 20111222
  Serious: No
  Sender: FDA-Public Use
  Company Number: US-ASTRAZENECA-2011SE22055

PATIENT
  Age: 83 Year
  Sex: Female

DRUGS (2)
  1. ARIMIDEX [Suspect]
     Route: 048
  2. NEXIUM [Suspect]
     Route: 048

REACTIONS (5)
  - WHEEZING [None]
  - MALAISE [None]
  - HEARING IMPAIRED [None]
  - DEMENTIA ALZHEIMER'S TYPE [None]
  - DYSPNOEA [None]
